FAERS Safety Report 14735791 (Version 1)
Quarter: 2018Q2

REPORT INFORMATION
  Report Type: Spontaneous
  Country: US (occurrence: US)
  Receive Date: 20180409
  Receipt Date: 20180409
  Transmission Date: 20180711
  Serious: No
  Sender: FDA-Public Use
  Company Number: US-SUNOVION-2018SUN001224

PATIENT
  Sex: Female

DRUGS (4)
  1. LATUDA [Suspect]
     Active Substance: LURASIDONE HYDROCHLORIDE
     Dosage: UNK
     Route: 048
     Dates: start: 2017
  2. METFORMIN [Concomitant]
     Active Substance: METFORMIN HYDROCHLORIDE
  3. ZYPREXA [Suspect]
     Active Substance: OLANZAPINE
  4. DEPAKOTE [Suspect]
     Active Substance: DIVALPROEX SODIUM

REACTIONS (4)
  - Blood pressure increased [Unknown]
  - Dry mouth [Unknown]
  - Glycosylated haemoglobin increased [Unknown]
  - Weight increased [Unknown]
